FAERS Safety Report 4503012-2 (Version None)
Quarter: 2004Q4

REPORT INFORMATION
  Report Type: 
  Country: None (occurrence: None)
  Receive Date: 20041112
  Receipt Date: 20041103
  Transmission Date: 20050328
  Serious: Yes (Hospitalization)
  Sender: FDA-Public Use
  Company Number: 200420578BWH

PATIENT
  Age: 68 Year
  Sex: Male

DRUGS (5)
  1. LEVITRA [Suspect]
     Indication: ERECTILE DYSFUNCTION
     Dosage: SEE IMAGE
     Route: 048
     Dates: start: 20040801
  2. LEVITRA [Suspect]
  3. ASPIRIN [Suspect]
     Indication: PROPHYLAXIS
     Dosage: 81 MG, TOTAL DAILY, ORAL
     Route: 048
     Dates: start: 20040801
  4. LISINOPRIL [Concomitant]
  5. VIAGRA [Concomitant]

REACTIONS (18)
  - ACALCULIA [None]
  - AGNOSIA [None]
  - AMNESIA [None]
  - BRAIN OEDEMA [None]
  - CEREBRAL DISORDER [None]
  - CEREBRAL HAEMATOMA [None]
  - CEREBRAL ISCHAEMIA [None]
  - CONDITION AGGRAVATED [None]
  - COUGH [None]
  - FEELING ABNORMAL [None]
  - HAEMORRHAGIC STROKE [None]
  - HEADACHE [None]
  - HYPERTENSION [None]
  - HYPOVOLAEMIA [None]
  - MEDICATION ERROR [None]
  - NODULE [None]
  - RATHKE'S CLEFT CYST [None]
  - RESPIRATORY RATE INCREASED [None]
